FAERS Safety Report 19600284 (Version 2)
Quarter: 2022Q1

REPORT INFORMATION
  Report Type: Spontaneous
  Country: US (occurrence: US)
  Receive Date: 20210722
  Receipt Date: 20220222
  Transmission Date: 20220423
  Serious: Yes (Other)
  Sender: FDA-Public Use
  Company Number: US-PFIZER INC-2021883624

PATIENT
  Age: 63 Year
  Sex: Female
  Weight: 99.773 kg

DRUGS (9)
  1. INLYTA [Suspect]
     Active Substance: AXITINIB
     Indication: Renal cell carcinoma
     Dosage: 3 MG, 2X/DAY (3 TABLETS TWICE DAILY)
     Route: 048
     Dates: start: 202009
  2. VITAMIN D3 [Concomitant]
     Active Substance: CHOLECALCIFEROL
     Dosage: 10 ML(10(400)/ML DROPS)
  3. ASPIRIN [Concomitant]
     Active Substance: ASPIRIN
     Dosage: 81 MG TAB CHEW
  4. KEPPRA [Concomitant]
     Active Substance: LEVETIRACETAM
     Dosage: 750 MG
  5. LEVOTHYROXINE [Concomitant]
     Active Substance: LEVOTHYROXINE
     Dosage: 88 UG
  6. PROZAC DURAPAC [Concomitant]
     Dosage: 10 MG
  7. TRADJENTA [Concomitant]
     Active Substance: LINAGLIPTIN
     Dosage: 5 MG
  8. ULORIC [Concomitant]
     Active Substance: FEBUXOSTAT
     Dosage: 40 MG
  9. BENICAR [Concomitant]
     Active Substance: OLMESARTAN MEDOXOMIL
     Dosage: 20 MG

REACTIONS (6)
  - Seizure [Unknown]
  - Stomatitis [Not Recovered/Not Resolved]
  - Increased upper airway secretion [Unknown]
  - Eating disorder [Unknown]
  - Fungal infection [Unknown]
  - Burning sensation [Unknown]

NARRATIVE: CASE EVENT DATE: 20210628
